FAERS Safety Report 7498292-8 (Version None)
Quarter: 2011Q2

REPORT INFORMATION
  Report Type: 
  Country: None (occurrence: None)
  Receive Date: 20110524
  Receipt Date: 20110310
  Transmission Date: 20111010
  Serious: Yes (Other)
  Sender: FDA-Public Use
  Company Number: US-BAYER-200829333NA

PATIENT
  Sex: Male
  Weight: 81.818 kg

DRUGS (33)
  1. OMNISCAN [Suspect]
     Indication: ANGIOGRAM
     Dosage: UNK
     Dates: start: 20040504, end: 20040504
  2. PROHANCE [Suspect]
     Indication: NUCLEAR MAGNETIC RESONANCE IMAGING
     Dosage: UNK
     Dates: start: 20031116
  3. COREG [Concomitant]
     Dosage: 3.125 MG, BID
  4. IMDUR [Concomitant]
  5. IRON SUPPLEMENT [Concomitant]
  6. MAGNEVIST [Suspect]
     Indication: ANGIOGRAM
     Dosage: UNK
     Dates: start: 20050304, end: 20050304
  7. OMNISCAN [Suspect]
     Indication: NUCLEAR MAGNETIC RESONANCE IMAGING
     Dosage: 20 ML, UNK
     Dates: start: 20030402, end: 20110402
  8. MULTIHANCE [Suspect]
     Indication: NUCLEAR MAGNETIC RESONANCE IMAGING
  9. ALLOPURINOL [Concomitant]
  10. GADOLINIUM IN UNSPECIFIED DRUG [Suspect]
     Dates: start: 20050304, end: 20050304
  11. ASPIRIN [Concomitant]
  12. LIPITOR [Concomitant]
     Dosage: 40 MG, QD
  13. JANUVIA [Concomitant]
     Dosage: 100 MG, QD
  14. ACTOS [Concomitant]
     Dosage: 45 MG, QD
  15. LASIX [Concomitant]
     Dosage: 40 MG, BID
  16. DIOVAN [Concomitant]
  17. INDERAL [Concomitant]
  18. OPTIMARK [Suspect]
     Indication: NUCLEAR MAGNETIC RESONANCE IMAGING
  19. NEPHROVITE [VIT C,VIT H,B5,B12,B9,B3,B6,B2,B1 HCL] [Concomitant]
  20. MAGNEVIST [Suspect]
     Indication: NUCLEAR MAGNETIC RESONANCE IMAGING
     Dosage: UNK
     Dates: start: 20040504, end: 20040504
  21. PLAVIX [Concomitant]
     Dosage: DAILY DOSE 75 MG
  22. RENAGEL [Concomitant]
  23. NEURONTIN [Concomitant]
  24. PROGRAF [Concomitant]
     Dosage: 0.5 MG, BID
  25. ASPIRIN [Concomitant]
     Dosage: 81 MG, QD
  26. COZAAR [Concomitant]
     Dosage: 50 MG, QD
  27. GABAPENTIN [Concomitant]
     Dosage: 300 MG, QD
  28. RANEXA [Concomitant]
     Dosage: 500 MG, QD
  29. PROHANCE [Suspect]
  30. NOVOLOG [Concomitant]
  31. ARANESP [Concomitant]
  32. CELLCEPT [Concomitant]
     Dosage: DAILY DOSE 500 MG
  33. PREDNISONE [Concomitant]
     Dosage: DAILY DOSE 5 MG

REACTIONS (10)
  - GENERAL PHYSICAL HEALTH DETERIORATION [None]
  - INJURY [None]
  - PAIN [None]
  - MUSCULAR WEAKNESS [None]
  - EMOTIONAL DISTRESS [None]
  - MOBILITY DECREASED [None]
  - BONE PAIN [None]
  - RENAL FAILURE CHRONIC [None]
  - ANXIETY [None]
  - NEPHROGENIC SYSTEMIC FIBROSIS [None]
